FAERS Safety Report 6527200-9 (Version None)
Quarter: 2009Q4

REPORT INFORMATION
  Report Type: 
  Country: None (occurrence: None)
  Receive Date: 20091222
  Receipt Date: 20091023
  Transmission Date: 20100525
  Serious: No
  Sender: FDA-Public Use
  Company Number: ALL1-2009-03335

PATIENT
  Sex: Female
  Weight: 70.3 kg

DRUGS (6)
  1. VYVANSE [Suspect]
     Indication: SYSTEMIC LUPUS ERYTHEMATOSUS
     Dosage: 30; 40 MG, 1XDAY:QD,ORAL; 30 MG, ONCE OR TWICE DAILY ORAL; 30 MG, 2X/DAY:BID, ORAL
     Route: 048
     Dates: start: 20090101, end: 20090101
  2. VYVANSE [Suspect]
     Indication: SYSTEMIC LUPUS ERYTHEMATOSUS
     Dosage: 30; 40 MG, 1XDAY:QD,ORAL; 30 MG, ONCE OR TWICE DAILY ORAL; 30 MG, 2X/DAY:BID, ORAL
     Route: 048
     Dates: start: 20090401, end: 20090101
  3. VYVANSE [Suspect]
     Indication: SYSTEMIC LUPUS ERYTHEMATOSUS
     Dosage: 30; 40 MG, 1XDAY:QD,ORAL; 30 MG, ONCE OR TWICE DAILY ORAL; 30 MG, 2X/DAY:BID, ORAL
     Route: 048
     Dates: start: 20090101, end: 20091001
  4. VYVANSE [Suspect]
     Indication: SYSTEMIC LUPUS ERYTHEMATOSUS
     Dosage: 30; 40 MG, 1XDAY:QD,ORAL; 30 MG, ONCE OR TWICE DAILY ORAL; 30 MG, 2X/DAY:BID, ORAL
     Route: 048
     Dates: start: 20091001
  5. NUVARING (ETHINYLESTRADIOL, ETONOGESTREL) TABLET [Concomitant]
  6. LEXAPRO [Concomitant]

REACTIONS (5)
  - DRUG EFFECT DECREASED [None]
  - INAPPROPRIATE SCHEDULE OF DRUG ADMINISTRATION [None]
  - INTENTIONAL DRUG MISUSE [None]
  - OFF LABEL USE [None]
  - THERAPEUTIC RESPONSE UNEXPECTED [None]
